FAERS Safety Report 23929063 (Version 2)
Quarter: 2024Q2

REPORT INFORMATION
  Report Type: Spontaneous
  Country: US (occurrence: US)
  Receive Date: 20240601
  Receipt Date: 20240621
  Transmission Date: 20240716
  Serious: Yes (Hospitalization, Other)
  Sender: FDA-Public Use
  Company Number: US-ABBVIE-5780346

PATIENT
  Sex: Male
  Weight: 74.842 kg

DRUGS (7)
  1. DALVANCE [Suspect]
     Active Substance: DALBAVANCIN
     Indication: Osteomyelitis
     Dosage: TIME INTERVAL: AS NECESSARY: FORM STRENGTH: 1000 MG
     Route: 065
     Dates: start: 20240515, end: 20240515
  2. DALVANCE [Suspect]
     Active Substance: DALBAVANCIN
     Indication: Osteomyelitis
     Dosage: TIME INTERVAL: AS NECESSARY: FORM STRENGTH: 1500MG
     Route: 065
     Dates: start: 20240522, end: 20240522
  3. BENADRYL [Concomitant]
     Active Substance: DIPHENHYDRAMINE HYDROCHLORIDE
     Indication: Product used for unknown indication
     Route: 065
  4. ACETAMINOPHEN [Concomitant]
     Active Substance: ACETAMINOPHEN
     Indication: Product used for unknown indication
  5. VANCOMYCIN [Concomitant]
     Active Substance: VANCOMYCIN
     Indication: Product used for unknown indication
  6. PREDNISONE [Concomitant]
     Active Substance: PREDNISONE
     Indication: Product used for unknown indication
     Route: 065
  7. CEFAZOLIN [Concomitant]
     Active Substance: CEFAZOLIN
     Indication: Product used for unknown indication

REACTIONS (11)
  - Wound infection [Unknown]
  - Erythema [Unknown]
  - Relapsing fever [Recovered/Resolved]
  - Pyrexia [Not Recovered/Not Resolved]
  - Drug eruption [Recovered/Resolved]
  - Osteomyelitis [Recovered/Resolved]
  - Fibula fracture [Recovered/Resolved]
  - Activated partial thromboplastin time prolonged [Unknown]
  - Human rhinovirus test positive [Unknown]
  - Rash morbilliform [Recovered/Resolved]
  - Rash [Unknown]

NARRATIVE: CASE EVENT DATE: 20240101
